FAERS Safety Report 14392279 (Version 3)
Quarter: 2018Q2

REPORT INFORMATION
  Report Type: Report from Study
  Country: US (occurrence: US)
  Receive Date: 20180116
  Receipt Date: 20180612
  Transmission Date: 20180711
  Serious: Yes (Death, Other)
  Sender: FDA-Public Use
  Company Number: US-ASTELLAS-2018US002185

PATIENT
  Age: 60 Year
  Sex: Male

DRUGS (1)
  1. ISAVUCONAZOLE [Suspect]
     Active Substance: ISAVUCONAZOLE
     Indication: ASPERGILLUS INFECTION
     Dosage: 372 MG (TWO 186 MG CAP), ONCE DAILY
     Route: 048

REACTIONS (3)
  - Fatigue [Recovering/Resolving]
  - Death [Fatal]
  - Pulmonary mycosis [Unknown]

NARRATIVE: CASE EVENT DATE: 20180110
